FAERS Safety Report 7067626-0 (Version None)
Quarter: 2010Q4

REPORT INFORMATION
  Report Type: 
  Country: None (occurrence: None)
  Receive Date: 20101028
  Receipt Date: 20101025
  Transmission Date: 20110411
  Serious: Yes (Life-Threatening)
  Sender: FDA-Public Use
  Company Number: GB-NOVOPROD-317014

PATIENT
  Age: 47 Year
  Sex: Male
  Weight: 140 kg

DRUGS (7)
  1. VICTOZA [Suspect]
     Indication: OBESITY
     Dosage: 1.2 MG, QD
     Route: 058
     Dates: start: 20100401
  2. BENDROFLUMETHIAZIDE [Concomitant]
  3. GLICLAZIDE [Concomitant]
  4. LORAZEPAM [Concomitant]
  5. METFORMIN [Concomitant]
  6. METOCLOPRAMIDE [Concomitant]
  7. RAMIPRIL [Concomitant]

REACTIONS (1)
  - OESOPHAGEAL CARCINOMA [None]
